FAERS Safety Report 9656681 (Version 2)
Quarter: 2013Q4

REPORT INFORMATION
  Report Type: Spontaneous
  Country: US (occurrence: US)
  Receive Date: 20131030
  Receipt Date: 20131030
  Transmission Date: 20140711
  Serious: Yes (Hospitalization, Other)
  Sender: FDA-Public Use
  Company Number: US-TEVA-428750USA

PATIENT
  Sex: Female

DRUGS (1)
  1. AMIODARONE [Suspect]

REACTIONS (3)
  - Urinary tract infection [Unknown]
  - Chromaturia [Unknown]
  - Dehydration [Unknown]
